FAERS Safety Report 15468769 (Version 2)
Quarter: 2018Q4

REPORT INFORMATION
  Report Type: Spontaneous
  Country: US (occurrence: US)
  Receive Date: 20181005
  Receipt Date: 20181120
  Transmission Date: 20190204
  Serious: No
  Sender: FDA-Public Use
  Company Number: US-VERTEX PHARMACEUTICALS-2018-007134

PATIENT
  Sex: Female

DRUGS (22)
  1. AZITHROMYCIN ANHYDROUS. [Concomitant]
     Active Substance: AZITHROMYCIN ANHYDROUS
  2. OMEPRAZOLE. [Concomitant]
     Active Substance: OMEPRAZOLE
  3. SMZ-TMP [Concomitant]
     Active Substance: SULFAMETHOXAZOLE\TRIMETHOPRIM
  4. ZENPEP [Concomitant]
     Active Substance: PANCRELIPASE AMYLASE\PANCRELIPASE LIPASE\PANCRELIPASE PROTEASE
  5. PREDNISONE. [Concomitant]
     Active Substance: PREDNISONE
  6. OSELTAMIVIR [Concomitant]
     Active Substance: OSELTAMIVIR
  7. BASAGLAR [Concomitant]
     Active Substance: INSULIN GLARGINE
  8. VENTOLIN HFA [Concomitant]
     Active Substance: ALBUTEROL SULFATE
  9. LANTUS [Concomitant]
     Active Substance: INSULIN GLARGINE
  10. CAYSTON [Concomitant]
     Active Substance: AZTREONAM
  11. MONTELUKAST [Concomitant]
     Active Substance: MONTELUKAST SODIUM
  12. RANITIDINE. [Concomitant]
     Active Substance: RANITIDINE
  13. TOBRAMYCIN. [Concomitant]
     Active Substance: TOBRAMYCIN
     Route: 055
  14. CIPROFLOXACIN. [Concomitant]
     Active Substance: CIPROFLOXACIN
  15. ORKAMBI [Suspect]
     Active Substance: IVACAFTOR\LUMACAFTOR
     Indication: CYSTIC FIBROSIS
     Dosage: 2 DOSAGE FORM, BID
     Route: 048
     Dates: start: 20160331, end: 201809
  16. FLUTICASONE. [Concomitant]
     Active Substance: FLUTICASONE
     Route: 045
  17. PULMOZYME [Concomitant]
     Active Substance: DORNASE ALFA
  18. ALBUTEROL                          /00139501/ [Concomitant]
     Active Substance: ALBUTEROL
  19. HUMALOG [Concomitant]
     Active Substance: INSULIN LISPRO
  20. SYMBICORT [Concomitant]
     Active Substance: BUDESONIDE\FORMOTEROL FUMARATE DIHYDRATE
  21. IBUPROFEN. [Concomitant]
     Active Substance: IBUPROFEN
  22. JANUVIA [Concomitant]
     Active Substance: SITAGLIPTIN PHOSPHATE

REACTIONS (1)
  - Drug ineffective [Unknown]
